FAERS Safety Report 15323977 (Version 2)
Quarter: 2018Q3

REPORT INFORMATION
  Report Type: Spontaneous
  Country: FR (occurrence: FR)
  Receive Date: 20180828
  Receipt Date: 20180831
  Transmission Date: 20181010
  Serious: Yes (Death, Hospitalization, Other)
  Sender: FDA-Public Use
  Company Number: FR-ROCHE-2174363

PATIENT
  Age: 39 Year
  Sex: Female

DRUGS (11)
  1. 5?FLUOROURACIL [Suspect]
     Active Substance: FLUOROURACIL
     Indication: BREAST CANCER
     Dosage: CYCLIC (6 CYCLES)
     Route: 065
  2. EPIRUBICIN HYDROCHLORIDE. [Suspect]
     Active Substance: EPIRUBICIN HYDROCHLORIDE
     Indication: BREAST CANCER
     Dosage: CYCLIC (6 CYCLES)
     Route: 065
  3. FLUDARABINE [Concomitant]
     Active Substance: FLUDARABINE PHOSPHATE
     Indication: PRODUCT USED FOR UNKNOWN INDICATION
     Dosage: (D?6, D?5 AND D?4)
     Route: 065
  4. IDARUBICIN [Suspect]
     Active Substance: IDARUBICIN
     Indication: PRODUCT USED FOR UNKNOWN INDICATION
     Dosage: CYCLIC (5+7)
     Route: 065
     Dates: start: 200801
  5. IDARUBICIN [Suspect]
     Active Substance: IDARUBICIN
     Dosage: CYCLIC (2+4)
     Route: 065
     Dates: start: 200801
  6. CYCLOPHOSPHAMIDE. [Suspect]
     Active Substance: CYCLOPHOSPHAMIDE
     Indication: BREAST CANCER
     Dosage: (D?5 AND D?4)
     Route: 065
  7. IRRADIATION [Concomitant]
     Active Substance: UNSPECIFIED INGREDIENT
     Indication: PRODUCT USED FOR UNKNOWN INDICATION
     Dosage: 6 FRACTIONS AND 3 DAYS
     Route: 065
  8. ARACYTINE [Concomitant]
     Active Substance: CYTARABINE
     Dosage: CYCLIC (5+7)
     Route: 065
  9. CICLOSPORIN [Suspect]
     Active Substance: CYCLOSPORINE
     Indication: PROPHYLAXIS AGAINST GRAFT VERSUS HOST DISEASE
     Route: 042
  10. MYCOPHENOLATE MOFETIL. [Suspect]
     Active Substance: MYCOPHENOLATE MOFETIL
     Indication: PROPHYLAXIS AGAINST GRAFT VERSUS HOST DISEASE
     Route: 065
  11. ARACYTINE [Concomitant]
     Active Substance: CYTARABINE
     Indication: ACUTE MYELOID LEUKAEMIA
     Dosage: CYCLIC (2+4)
     Route: 065

REACTIONS (17)
  - Pleural effusion [Unknown]
  - Pericardial effusion [Unknown]
  - Pyrexia [Unknown]
  - Liver disorder [Unknown]
  - Chest pain [Unknown]
  - Generalised oedema [Unknown]
  - Graft versus host disease in gastrointestinal tract [Unknown]
  - Ejection fraction decreased [Unknown]
  - Depressed level of consciousness [Unknown]
  - Pneumonia [Unknown]
  - Dilatation ventricular [Unknown]
  - Multiple organ dysfunction syndrome [Fatal]
  - Cardiac dysfunction [Unknown]
  - Acute myeloid leukaemia [Unknown]
  - Human herpesvirus 6 infection [Unknown]
  - Tachycardia [Unknown]
  - Tricuspid valve incompetence [Unknown]
